FAERS Safety Report 9392856 (Version 1)
Quarter: 2013Q3

REPORT INFORMATION
  Report Type: Spontaneous
  Country: US (occurrence: None)
  Receive Date: 20130708
  Receipt Date: 20130708
  Transmission Date: 20140515
  Serious: No
  Sender: FDA-Public Use
  Company Number: None

PATIENT
  Sex: 0

DRUGS (1)
  1. CIMZIA [Suspect]
     Indication: RHEUMATOID ARTHRITIS
     Dates: start: 20130225, end: 20130301

REACTIONS (4)
  - Paraesthesia [None]
  - Local swelling [None]
  - Hypoaesthesia [None]
  - Urinary incontinence [None]
